FAERS Safety Report 19468945 (Version 1)
Quarter: 2021Q2

REPORT INFORMATION
  Report Type: Spontaneous
  Country: JM (occurrence: JM)
  Receive Date: 20210628
  Receipt Date: 20210628
  Transmission Date: 20210717
  Serious: Yes (Other)
  Sender: FDA-Public Use
  Company Number: NVSC2021JM138706

PATIENT
  Sex: Female

DRUGS (1)
  1. LECTRUM [Suspect]
     Active Substance: LEUPROLIDE ACETATE
     Indication: HAEMORRHAGE
     Dosage: 3.75 MG, QMO (MONTHLY DOSEX2)
     Route: 030
     Dates: start: 202012, end: 202102

REACTIONS (2)
  - Haemorrhage [Recovering/Resolving]
  - Product use in unapproved indication [Unknown]

NARRATIVE: CASE EVENT DATE: 202012
